FAERS Safety Report 6764959-X (Version None)
Quarter: 2010Q2

REPORT INFORMATION
  Report Type: 
  Country: None (occurrence: None)
  Receive Date: 20100609
  Receipt Date: 20100504
  Transmission Date: 20101027
  Serious: No
  Sender: FDA-Public Use
  Company Number: 2010010889

PATIENT
  Age: 8 Year
  Sex: Male
  Weight: 25.4014 kg

DRUGS (2)
  1. CHILDREN'S ZYRTEC ALLERGY [Suspect]
     Indication: HYPERSENSITIVITY
     Dosage: 1 1/2 - 2 TEASPOONFULS DAILY, ORAL
     Route: 048
     Dates: start: 20100423, end: 20100503
  2. ARIPIPRAZOLE [Concomitant]

REACTIONS (3)
  - NAUSEA [None]
  - PRODUCT QUALITY ISSUE [None]
  - VOMITING [None]
